FAERS Safety Report 5524383-4 (Version None)
Quarter: 2007Q4

REPORT INFORMATION
  Report Type: 
  Country: None (occurrence: None)
  Receive Date: 20071121
  Receipt Date: 20071113
  Transmission Date: 20080405
  Serious: Yes (Hospitalization, Other)
  Sender: FDA-Public Use
  Company Number: NL-PFIZER INC-2007096460

PATIENT
  Sex: Female
  Weight: 78 kg

DRUGS (7)
  1. NEURONTIN [Suspect]
     Indication: PAIN
     Route: 048
  2. ALPRAZOLAM [Concomitant]
  3. FEMODEEN [Concomitant]
  4. CETIRIZINE HCL [Concomitant]
  5. CINNARIZINE [Concomitant]
  6. ATROVENT [Concomitant]
  7. DOGMATYL [Concomitant]
     Route: 048
     Dates: start: 20060601, end: 20070101

REACTIONS (15)
  - ANXIETY [None]
  - COMA [None]
  - DEHYDRATION [None]
  - DYSKINESIA [None]
  - EXTRAPYRAMIDAL DISORDER [None]
  - FEELING DRUNK [None]
  - INSOMNIA [None]
  - MALNUTRITION [None]
  - MUSCULAR WEAKNESS [None]
  - MUSCULOSKELETAL STIFFNESS [None]
  - PARKINSONISM [None]
  - SOCIAL PROBLEM [None]
  - SPEECH DISORDER [None]
  - WEIGHT INCREASED [None]
  - WITHDRAWAL SYNDROME [None]
